FAERS Safety Report 13982071 (Version 1)
Quarter: 2017Q3

REPORT INFORMATION
  Report Type: Spontaneous
  Country: US (occurrence: US)
  Receive Date: 20170918
  Receipt Date: 20170918
  Transmission Date: 20171128
  Serious: No
  Sender: FDA-Public Use
  Company Number: PHEH2017US028753

PATIENT
  Age: 85 Year
  Sex: Female

DRUGS (9)
  1. CITRICAL D [Concomitant]
     Indication: SUPPLEMENTATION THERAPY
     Dosage: 1 DF (400MG/900IU), QD (HAD BEEN TAKING FOR ABOUT 10 YEARS)
     Route: 048
  2. CYMBALTA [Concomitant]
     Active Substance: DULOXETINE HYDROCHLORIDE
     Indication: VERTEBRAL FORAMINAL STENOSIS
     Dosage: 60 MG, QD (HAD BEEN TAKING FOR ABOUT 3 YEARS)
     Route: 048
  3. CYMBALTA [Concomitant]
     Active Substance: DULOXETINE HYDROCHLORIDE
     Indication: INTERVERTEBRAL DISC PROTRUSION
  4. LETROZOLE. [Suspect]
     Active Substance: LETROZOLE
     Indication: BREAST CANCER METASTATIC
     Dosage: UNK
     Route: 065
     Dates: end: 201609
  5. DIOVAN [Concomitant]
     Active Substance: VALSARTAN
     Indication: BLOOD PRESSURE ABNORMAL
     Dosage: 320 MG, QD (HAD BEEN TAKING FOR ABOUT 3 YEARS)
     Route: 065
  6. CYMBALTA [Concomitant]
     Active Substance: DULOXETINE HYDROCHLORIDE
     Indication: SPINAL PAIN
  7. VITAMIN E [Concomitant]
     Active Substance: .ALPHA.-TOCOPHEROL
     Indication: SUPPLEMENTATION THERAPY
     Dosage: 1000 U, QD (HAD BEEN TAKING FOR ABOUT 10 YEARS)
     Route: 065
  8. PROLIA [Concomitant]
     Active Substance: DENOSUMAB
     Indication: BONE DISORDER
     Dosage: UNK UNK, QMO
     Route: 065
     Dates: start: 201609
  9. FISH OIL [Concomitant]
     Active Substance: FISH OIL
     Indication: SUPPLEMENTATION THERAPY
     Dosage: 1 DF (1000MG/300MG), QD (HAD BEEN TAKING FOR ABOUT 10 YEARS)
     Route: 048

REACTIONS (1)
  - Drug ineffective [Unknown]

NARRATIVE: CASE EVENT DATE: 201609
